FAERS Safety Report 13091492 (Version 2)
Quarter: 2017Q1

REPORT INFORMATION
  Report Type: Other
  Country: JP (occurrence: JP)
  Receive Date: 20170106
  Receipt Date: 20170120
  Transmission Date: 20170428
  Serious: Yes (Other)
  Sender: FDA-Public Use
  Company Number: JP-LUPIN PHARMACEUTICALS INC.-2017-00108

PATIENT
  Age: 72 Year
  Sex: Male
  Weight: 49.3 kg

DRUGS (12)
  1. GEFITINIB [Interacting]
     Active Substance: GEFITINIB
     Route: 065
     Dates: start: 2013, end: 2013
  2. RIFABUTIN. [Suspect]
     Active Substance: RIFABUTIN
     Indication: MYCOBACTERIUM AVIUM COMPLEX INFECTION
     Route: 065
     Dates: start: 2013, end: 2013
  3. CLARITHROMYCIN. [Interacting]
     Active Substance: CLARITHROMYCIN
     Route: 065
     Dates: start: 2013, end: 2013
  4. GEFITINIB [Interacting]
     Active Substance: GEFITINIB
     Route: 065
     Dates: start: 2013, end: 2013
  5. CLARITHROMYCIN. [Interacting]
     Active Substance: CLARITHROMYCIN
     Indication: MYCOBACTERIUM AVIUM COMPLEX INFECTION
     Route: 065
     Dates: start: 2013, end: 2013
  6. ETHAMBUTOL [Interacting]
     Active Substance: ETHAMBUTOL HYDROCHLORIDE
     Indication: MYCOBACTERIUM AVIUM COMPLEX INFECTION
     Route: 065
     Dates: start: 2013, end: 2013
  7. RIFAMPICIN [Interacting]
     Active Substance: RIFAMPIN
     Indication: MYCOBACTERIUM AVIUM COMPLEX INFECTION
     Route: 065
  8. AFATINIB [Interacting]
     Active Substance: AFATINIB
     Indication: LUNG ADENOCARCINOMA STAGE IV
     Route: 065
  9. RIFABUTIN. [Interacting]
     Active Substance: RIFABUTIN
     Route: 065
     Dates: start: 2013, end: 2013
  10. GEFITINIB [Interacting]
     Active Substance: GEFITINIB
     Indication: LUNG ADENOCARCINOMA STAGE IV
     Route: 065
     Dates: start: 201208
  11. GEFITINIB [Interacting]
     Active Substance: GEFITINIB
     Route: 065
     Dates: start: 2013, end: 2013
  12. ETHAMBUTOL [Interacting]
     Active Substance: ETHAMBUTOL HYDROCHLORIDE
     Route: 065
     Dates: start: 2013, end: 2013

REACTIONS (4)
  - Adverse event [Unknown]
  - Hepatic function abnormal [Unknown]
  - Drug level decreased [Unknown]
  - Drug interaction [Unknown]
